FAERS Safety Report 4979162-3 (Version None)
Quarter: 2006Q2

REPORT INFORMATION
  Report Type: 
  Country: None (occurrence: None)
  Receive Date: 20060418
  Receipt Date: 20060330
  Transmission Date: 20061013
  Serious: Yes (Hospitalization)
  Sender: FDA-Public Use
  Company Number: FR200602002875

PATIENT
  Age: 51 Year
  Sex: Female

DRUGS (3)
  1. PROZAC [Suspect]
     Indication: DEPRESSION
     Dosage: 20 MG, DAILY (1/D), ORAL
     Route: 048
     Dates: start: 20051201, end: 20060115
  2. PROZAC [Suspect]
     Indication: DEPRESSION
     Dosage: 20 MG, DAILY (1/D), ORAL
     Route: 048
     Dates: start: 20060101
  3. ZOLPIDEM TARTRATE [Concomitant]

REACTIONS (10)
  - DIARRHOEA [None]
  - DRUG WITHDRAWAL SYNDROME [None]
  - FACE INJURY [None]
  - FALL [None]
  - HAEMATOMA [None]
  - NAUSEA [None]
  - TONIC CLONIC MOVEMENTS [None]
  - TRAUMATIC HAEMATOMA [None]
  - TREATMENT NONCOMPLIANCE [None]
  - VOMITING [None]
